FAERS Safety Report 9177777 (Version 1)
Quarter: 2013Q1

REPORT INFORMATION
  Report Type: Spontaneous
  Country: US (occurrence: None)
  Receive Date: 20120531
  Receipt Date: 20120531
  Transmission Date: 20140127
  Serious: Yes (Other)
  Sender: FDA-Public Use
  Company Number: US201201005767

PATIENT
  Age: 38 Year
  Sex: Female

DRUGS (11)
  1. BYETTA [Suspect]
     Indication: TYPE 2 DIABETES MELLITUS
     Route: 058
     Dates: start: 20111214, end: 20120126
  2. LEXAPRO (ESCITALOPRAM OXALATE) [Concomitant]
  3. TRAMADOL (TRAMADOL) [Concomitant]
  4. LISINOPRIL/USA/(LISINOPRIL) [Concomitant]
  5. ZIAC )BISOPROLOL FUMARATE, HYDROCHLORITHIAZIDE) [Concomitant]
  6. LORAZEPAM (LORAZEPAM) [Concomitant]
  7. AMOUR THYROID (THYROID) [Concomitant]
  8. VITAMIN B12 (CYANOCOBALMIN) [Concomitant]
  9. VITAMIN D (ERGOCALCIFEROL) [Concomitant]
  10. LIPITOR (ATORVASTATIN CALCIUM) [Concomitant]
  11. ALLOPURINOL [Concomitant]

REACTIONS (2)
  - Angioedema [None]
  - Urticaria [None]
